FAERS Safety Report 6806342-4 (Version None)
Quarter: 2010Q2

REPORT INFORMATION
  Report Type: 
  Country: None (occurrence: None)
  Receive Date: 20100629
  Receipt Date: 20080130
  Transmission Date: 20101027
  Serious: No
  Sender: FDA-Public Use
  Company Number: US-PFIZER INC-2008010506

PATIENT
  Sex: Female

DRUGS (11)
  1. ALPRAZOLAM [Suspect]
     Indication: FIBROMYALGIA
  2. CITALOPRAM [Concomitant]
  3. ALL OTHER THERAPEUTIC PRODUCTS [Concomitant]
  4. FUROSEMIDE [Concomitant]
  5. LISINOPRIL [Concomitant]
  6. METOPROLOL [Concomitant]
  7. CARISOPRODOL [Concomitant]
  8. OMEPRAZOLE [Concomitant]
  9. DILTIAZEM [Concomitant]
  10. FLUDROCORTISONE [Concomitant]
  11. LIDODERM [Concomitant]

REACTIONS (2)
  - COELIAC DISEASE [None]
  - INFLAMMATION [None]
